FAERS Safety Report 23419796 (Version 1)
Quarter: 2024Q1

REPORT INFORMATION
  Report Type: Spontaneous
  Country: US (occurrence: US)
  Receive Date: 20240119
  Receipt Date: 20240119
  Transmission Date: 20240410
  Serious: Yes (Other)
  Sender: FDA-Public Use
  Company Number: US-CIPLA LTD.-2024US00391

PATIENT

DRUGS (3)
  1. VASOPRESSIN [Suspect]
     Active Substance: VASOPRESSIN
     Indication: Vasoplegia syndrome
     Dosage: UNK
     Route: 065
  2. PHENYLEPHRINE [Concomitant]
     Active Substance: PHENYLEPHRINE HYDROCHLORIDE
     Indication: Hypotension
     Dosage: ESCALATING DOSES
     Route: 065
  3. NOREPINEPHRINE [Concomitant]
     Active Substance: NOREPINEPHRINE
     Indication: Hypotension
     Dosage: ESCALATING DOSES
     Route: 065

REACTIONS (1)
  - Inappropriate antidiuretic hormone secretion [Recovering/Resolving]
